FAERS Safety Report 5411676-4 (Version None)
Quarter: 2007Q3

REPORT INFORMATION
  Report Type: 
  Country: None (occurrence: None)
  Receive Date: 20070810
  Receipt Date: 20070802
  Transmission Date: 20080115
  Serious: Yes (Other)
  Sender: FDA-Public Use
  Company Number: JP-MERCK-0708USA01104

PATIENT
  Age: 62 Year
  Sex: Female

DRUGS (8)
  1. HYZAAR [Suspect]
     Indication: HYPERTENSION
     Route: 048
     Dates: start: 20070724, end: 20070724
  2. OLMESARTAN MEDOXOMIL [Concomitant]
     Indication: HYPERTENSION
     Route: 048
     Dates: start: 20060922, end: 20070723
  3. AMLODIPINE BESYLATE [Concomitant]
     Route: 048
     Dates: start: 20060824
  4. DOXAZOSIN MESYLATE [Concomitant]
     Indication: HYPERTENSION
     Route: 048
     Dates: start: 20061002
  5. METICRANE [Concomitant]
     Route: 048
     Dates: start: 20061130
  6. ZOCOR [Concomitant]
     Indication: HYPERLIPIDAEMIA
     Route: 048
     Dates: start: 20060828
  7. AMARYL [Concomitant]
     Indication: DIABETES MELLITUS
     Route: 065
     Dates: start: 20061019
  8. ASPIRIN [Concomitant]
     Route: 048
     Dates: start: 20060825

REACTIONS (1)
  - SHOCK [None]
